FAERS Safety Report 5684621-4 (Version None)
Quarter: 2008Q1

REPORT INFORMATION
  Report Type: 
  Country: None (occurrence: None)
  Receive Date: 20080328
  Receipt Date: 20070711
  Transmission Date: 20080703
  Serious: Yes (Death, Life-Threatening)
  Sender: FDA-Public Use
  Company Number: US-BRISTOL-MYERS SQUIBB COMPANY-13748389

PATIENT
  Age: 75 Year
  Sex: Male

DRUGS (15)
  1. ERBITUX [Suspect]
     Indication: NEOPLASM MALIGNANT
     Route: 042
     Dates: start: 20070413, end: 20070413
  2. BENADRYL [Concomitant]
     Indication: PREMEDICATION
     Route: 042
  3. GLUCOTROL [Concomitant]
  4. REGLAN [Concomitant]
  5. OXYCONTIN [Concomitant]
  6. PRILOSEC [Concomitant]
  7. RITALIN [Concomitant]
  8. SELENIUM [Concomitant]
  9. WHEAT GERM [Concomitant]
  10. LIPOIC ACID [Concomitant]
  11. GRAPESEED EXTRACT [Concomitant]
  12. ASCORBIC ACID [Concomitant]
  13. CO-Q-10 [Concomitant]
  14. FOLIC ACID [Concomitant]
  15. MILK THISTLE [Concomitant]

REACTIONS (2)
  - CARDIAC ARREST [None]
  - MALIGNANT NEOPLASM PROGRESSION [None]
